FAERS Safety Report 23513137 (Version 1)
Quarter: 2024Q1

REPORT INFORMATION
  Report Type: Spontaneous
  Country: US (occurrence: None)
  Receive Date: 20240210
  Receipt Date: 20240210
  Transmission Date: 20240409
  Serious: Yes (Other)
  Sender: FDA-Public Use
  Company Number: None

PATIENT
  Age: 72 Year
  Sex: Female
  Weight: 47.25 kg

DRUGS (6)
  1. EQUATE TUSSIN DM MAX [Suspect]
     Active Substance: DEXTROMETHORPHAN HYDROBROMIDE\GUAIFENESIN
     Indication: Respiratory tract congestion
     Dosage: OTHER QUANTITY : 1 TEASPOON(S);?FREQUENCY : EVERY 4 HOURS;?
     Route: 048
     Dates: start: 20240209, end: 20240209
  2. TRAMADOL [Concomitant]
     Active Substance: TRAMADOL\TRAMADOL HYDROCHLORIDE
  3. TRAZODONE [Concomitant]
     Active Substance: TRAZODONE HYDROCHLORIDE
  4. OMEPRAZOLE [Concomitant]
     Active Substance: OMEPRAZOLE
  5. DULOXETINE [Concomitant]
     Active Substance: DULOXETINE
  6. VITAMIN D3 [Concomitant]
     Active Substance: CHOLECALCIFEROL

REACTIONS (5)
  - Dyspnoea [None]
  - Cough [None]
  - Dizziness [None]
  - Hyperhidrosis [None]
  - Product formulation issue [None]

NARRATIVE: CASE EVENT DATE: 20240209
